FAERS Safety Report 9593149 (Version 1)
Quarter: 2013Q3

REPORT INFORMATION
  Report Type: Spontaneous
  Country: US (occurrence: None)
  Receive Date: 20130930
  Receipt Date: 20130930
  Transmission Date: 20140515
  Serious: No
  Sender: FDA-Public Use
  Company Number: 1000046504

PATIENT
  Age: 56 Year
  Sex: Female

DRUGS (6)
  1. LINZESS (LINACLOTIDE) (145 MICROGRAM, CAPSULES) [Suspect]
     Indication: GASTROINTESTINAL PAIN
     Dosage: 145 MCG, 2 IN 1 D
     Route: 048
     Dates: start: 20130619, end: 20130705
  2. XIFAXAN [Concomitant]
  3. NEOMYCIN [Concomitant]
  4. MIRALAX [Concomitant]
  5. BISACODYL [Concomitant]
  6. OMERAZOLE [Concomitant]

REACTIONS (6)
  - Flatulence [None]
  - Abdominal distension [None]
  - Erythema [None]
  - Anorectal discomfort [None]
  - Inflammation [None]
  - Off label use [None]
